FAERS Safety Report 7455236-2 (Version None)
Quarter: 2011Q2

REPORT INFORMATION
  Report Type: 
  Country: None (occurrence: None)
  Receive Date: 20110503
  Receipt Date: 20110428
  Transmission Date: 20111010
  Serious: Yes (Hospitalization, Other)
  Sender: FDA-Public Use
  Company Number: PHHY2011CA28610

PATIENT
  Sex: Female

DRUGS (1)
  1. ZOLEDRONIC ACID [Suspect]
     Indication: OSTEOPOROSIS
     Dosage: 5 MG
     Route: 042
     Dates: start: 20110204

REACTIONS (6)
  - PALPITATIONS [None]
  - ARTHRALGIA [None]
  - GAIT DISTURBANCE [None]
  - ASTHENIA [None]
  - PAIN [None]
  - FEELING ABNORMAL [None]
